FAERS Safety Report 7929937-3 (Version None)
Quarter: 2011Q4

REPORT INFORMATION
  Report Type: 
  Country: None (occurrence: None)
  Receive Date: 20111117
  Receipt Date: 20111107
  Transmission Date: 20120403
  Serious: Yes (Death, Hospitalization)
  Sender: FDA-Public Use
  Company Number: 1000025403

PATIENT
  Age: 71 Year
  Sex: Male

DRUGS (3)
  1. COLCHICINE [Suspect]
  2. AMIODARONE HCL [Suspect]
  3. DILTIAZEM [Suspect]

REACTIONS (3)
  - DRUG INTERACTION [None]
  - GASTROINTESTINAL DISORDER [None]
  - CREATININE RENAL CLEARANCE DECREASED [None]
